FAERS Safety Report 10033974 (Version 1)
Quarter: 2014Q1

REPORT INFORMATION
  Report Type: Spontaneous
  Country: US (occurrence: None)
  Receive Date: 20140324
  Receipt Date: 20140324
  Transmission Date: 20141002
  Serious: Yes (Disabling)
  Sender: FDA-Public Use
  Company Number: None

PATIENT
  Age: 3 Year
  Sex: Female
  Weight: 17.69 kg

DRUGS (2)
  1. MONTELUKAST [Suspect]
     Indication: ASTHMA
     Route: 048
     Dates: start: 20140203, end: 20140321
  2. MONTELUKAST [Suspect]
     Indication: HYPERSENSITIVITY
     Route: 048
     Dates: start: 20140203, end: 20140321

REACTIONS (4)
  - Back pain [None]
  - Myalgia [None]
  - Product taste abnormal [None]
  - Product substitution issue [None]
